FAERS Safety Report 24527730 (Version 1)
Quarter: 2024Q4

REPORT INFORMATION
  Report Type: Spontaneous
  Country: CN (occurrence: CN)
  Receive Date: 20241021
  Receipt Date: 20241021
  Transmission Date: 20250115
  Serious: Yes (Other)
  Sender: ROCHE
  Company Number: CN-ROCHE-10000092231

PATIENT
  Age: 43 Year
  Sex: Female

DRUGS (4)
  1. ALECTINIB [Suspect]
     Active Substance: ALECTINIB
     Indication: Inflammatory myofibroblastic tumour
     Route: 048
  2. XELODA [Suspect]
     Active Substance: CAPECITABINE
     Indication: Inflammatory myofibroblastic tumour
     Route: 065
  3. SINTILIMAB [Suspect]
     Active Substance: SINTILIMAB
     Indication: Inflammatory myofibroblastic tumour
     Route: 065
  4. OXALIPLATIN [Suspect]
     Active Substance: OXALIPLATIN
     Indication: Inflammatory myofibroblastic tumour
     Route: 065

REACTIONS (13)
  - Hypersensitivity [Recovered/Resolved]
  - Dysgeusia [Unknown]
  - Rash [Unknown]
  - Pruritus [Unknown]
  - Pyrexia [Unknown]
  - Chills [Unknown]
  - Fatigue [Unknown]
  - Headache [Unknown]
  - Constipation [Unknown]
  - Anaemia [Unknown]
  - Leukopenia [Unknown]
  - Off label use [Unknown]
  - Disease progression [Unknown]
